FAERS Safety Report 5363321-4 (Version None)
Quarter: 2007Q2

REPORT INFORMATION
  Report Type: 
  Country: None (occurrence: None)
  Receive Date: 20070620
  Receipt Date: 20070611
  Transmission Date: 20071010
  Serious: Yes (Death)
  Sender: FDA-Public Use
  Company Number: GB-NOVOPROD-263307

PATIENT
  Sex: Male
  Weight: 88.5 kg

DRUGS (5)
  1. NOVOLOG MIX 70/30 [Suspect]
     Indication: INSULIN-REQUIRING TYPE II DIABETES MELLITUS
     Dosage: 78 IU, QD
     Route: 058
     Dates: start: 20050527
  2. NOVORAPID FLEXPEN [Suspect]
     Indication: INSULIN-REQUIRING TYPE II DIABETES MELLITUS
     Dosage: 4 IU, QD
     Route: 058
     Dates: start: 20061206
  3. ASPIRINE                           /00002701/ [Concomitant]
     Dosage: 150 MG, QD
     Route: 048
     Dates: start: 19930801
  4. SIMVASTATIN [Concomitant]
     Dosage: 20 MG, QD
     Route: 048
     Dates: start: 19951001
  5. METFORMIN HCL [Concomitant]
     Dosage: 2500 MG, QD
     Route: 048
     Dates: start: 19990414

REACTIONS (1)
  - MYOCARDIAL INFARCTION [None]
